FAERS Safety Report 19849315 (Version 1)
Quarter: 2021Q3

REPORT INFORMATION
  Report Type: Report from Study
  Country: US (occurrence: US)
  Receive Date: 20210917
  Receipt Date: 20210917
  Transmission Date: 20211014
  Serious: Yes (Other)
  Sender: FDA-Public Use
  Company Number: US-TEVA-2021-US-1950867

PATIENT
  Sex: Male
  Weight: 3.93 kg

DRUGS (6)
  1. DOLUTEGRAVIR [Suspect]
     Active Substance: DOLUTEGRAVIR
     Indication: HIV INFECTION
     Dosage: 50 MILLIGRAM DAILY;
     Route: 064
     Dates: start: 20210126
  2. ABACAVIR W/LAMIVUDINE TEVA [Suspect]
     Active Substance: ABACAVIR\LAMIVUDINE
     Indication: HIV INFECTION
     Route: 064
     Dates: start: 20201023, end: 20210126
  3. ABACAVIR+LAMIVUDINE [Suspect]
     Active Substance: ABACAVIR SULFATE\LAMIVUDINE
     Indication: HIV INFECTION
     Route: 064
     Dates: end: 20201023
  4. ABACAVIR+LAMIVUDINE CIPLA [Suspect]
     Active Substance: ABACAVIR\LAMIVUDINE
     Indication: HIV INFECTION
     Route: 064
     Dates: start: 20210223
  5. ATAZANAVIR+COBICISTAT [Suspect]
     Active Substance: ATAZANAVIR SULFATE\COBICISTAT
     Indication: HIV INFECTION
     Route: 064
     Dates: end: 20210126
  6. ABACAVIR+LAMIVUDINE [Suspect]
     Active Substance: ABACAVIR SULFATE\LAMIVUDINE
     Route: 064
     Dates: start: 20210126, end: 20210223

REACTIONS (3)
  - Foetal exposure during pregnancy [Unknown]
  - Melanosis [Unknown]
  - Skin hyperpigmentation [Unknown]
